FAERS Safety Report 24139879 (Version 2)
Quarter: 2024Q3

REPORT INFORMATION
  Report Type: Report from Study
  Country: CA (occurrence: CA)
  Receive Date: 20240726
  Receipt Date: 20240916
  Transmission Date: 20241017
  Serious: Yes (Hospitalization, Other)
  Sender: TAKEDA
  Company Number: CA-TAKEDA-2023TUS116626

PATIENT
  Age: 22 Year
  Sex: Female

DRUGS (12)
  1. HUMAN IMMUNOGLOBULIN G [Suspect]
     Active Substance: HUMAN IMMUNOGLOBULIN G
     Indication: Rasmussen encephalitis
     Dosage: 18 GRAM, 1/WEEK
     Route: 058
     Dates: start: 20231128
  2. HUMAN IMMUNOGLOBULIN G [Suspect]
     Active Substance: HUMAN IMMUNOGLOBULIN G
     Dosage: 18 GRAM, 1/WEEK
     Route: 058
  3. PREDNISONE [Concomitant]
     Active Substance: PREDNISONE
     Dosage: 1 DOSAGE FORM
     Route: 065
  4. LAMOTRIGINE [Concomitant]
     Active Substance: LAMOTRIGINE
     Dosage: 2 DOSAGE FORM
     Route: 065
  5. CLOBAZAM [Concomitant]
     Active Substance: CLOBAZAM
     Dosage: 2 DOSAGE FORM
     Route: 065
  6. LACOSAMIDE [Concomitant]
     Active Substance: LACOSAMIDE
     Dosage: 1 DOSAGE FORM
     Route: 065
  7. ESCITALOPRAM [Concomitant]
     Active Substance: ESCITALOPRAM OXALATE
     Dosage: 1 DOSAGE FORM
     Route: 065
  8. SULFATRIM [Concomitant]
     Active Substance: SULFAMETHOXAZOLE\TRIMETHOPRIM
     Dosage: 1 DOSAGE FORM
     Route: 065
  9. FYCOMPA [Concomitant]
     Active Substance: PERAMPANEL
     Dosage: 1 DOSAGE FORM
     Route: 065
  10. APTIOM [Concomitant]
     Active Substance: ESLICARBAZEPINE ACETATE
     Dosage: UNK
     Route: 065
  11. DILANTIN [Concomitant]
     Active Substance: PHENYTOIN
     Dosage: 3 DOSAGE FORM
     Route: 065
  12. DILANTIN [Concomitant]
     Active Substance: PHENYTOIN
     Dosage: 4 DOSAGE FORM
     Route: 065

REACTIONS (6)
  - Infection [Unknown]
  - Coma [Recovered/Resolved]
  - Seizure [Unknown]
  - Off label use [Unknown]
  - Product use issue [Unknown]
  - Dizziness [Unknown]

NARRATIVE: CASE EVENT DATE: 20231128
